FAERS Safety Report 10213203 (Version 3)
Quarter: 2015Q4

REPORT INFORMATION
  Report Type: Report from Study
  Country: US (occurrence: US)
  Receive Date: 20140603
  Receipt Date: 20151120
  Transmission Date: 20160304
  Serious: Yes (Hospitalization, Other)
  Sender: FDA-Public Use
  Company Number: US-AMGEN INC.-USASP2014040335

PATIENT
  Age: 64 Year
  Sex: Female

DRUGS (4)
  1. METHOTREXATE [Concomitant]
     Active Substance: METHOTREXATE
     Dosage: UNK
  2. MACROBID [Suspect]
     Active Substance: NITROFURANTOIN\NITROFURANTOIN MONOHYDRATE
     Indication: PRODUCT USED FOR UNKNOWN INDICATION
     Dosage: UNK
     Route: 065
  3. INVOKANA [Suspect]
     Active Substance: CANAGLIFLOZIN
     Indication: DIABETES MELLITUS
     Dosage: UNK
     Route: 065
     Dates: start: 201411, end: 201503
  4. ENBREL [Suspect]
     Active Substance: ETANERCEPT
     Indication: RHEUMATOID ARTHRITIS
     Dosage: 50 MG, QWK
     Route: 065
     Dates: start: 201201

REACTIONS (7)
  - Pain in extremity [Unknown]
  - Diabetes mellitus [Unknown]
  - Fatigue [Recovered/Resolved]
  - Urinary tract infection [Unknown]
  - Incontinence [Unknown]
  - Bladder operation [Recovered/Resolved]
  - Drug resistance [Unknown]

NARRATIVE: CASE EVENT DATE: 20131215
